FAERS Safety Report 18021322 (Version 1)
Quarter: 2020Q3

REPORT INFORMATION
  Report Type: Spontaneous
  Country: US (occurrence: US)
  Receive Date: 20200714
  Receipt Date: 20200714
  Transmission Date: 20201103
  Serious: No
  Sender: FDA-Public Use
  Company Number: US-PFIZER INC-2019325843

PATIENT
  Age: 47 Year
  Sex: Female

DRUGS (1)
  1. LYRICA CR [Suspect]
     Active Substance: PREGABALIN
     Indication: FIBROMYALGIA
     Dosage: 165 MG, DAILY (TAKE 1 TABLET(S) EVERY DAY BY ORAL ROUTE AS DIRECTED FOR 30 DAYS.)
     Route: 048

REACTIONS (4)
  - Product use in unapproved indication [Unknown]
  - Off label use [Unknown]
  - Pain [Unknown]
  - Nervous system disorder [Unknown]
